FAERS Safety Report 8098101-2 (Version None)
Quarter: 2012Q1

REPORT INFORMATION
  Report Type: 
  Country: None (occurrence: None)
  Receive Date: 20120128
  Receipt Date: 20110808
  Transmission Date: 20120608
  Serious: No
  Sender: FDA-Public Use
  Company Number: US-ABBOTT-11P-163-0844888-00

PATIENT
  Age: 51 Year
  Sex: Male

DRUGS (8)
  1. HYDROCODONE BITARTRATE [Concomitant]
     Indication: ABDOMINAL PAIN
     Dosage: 10-500MG
  2. HYDROCODONE BITARTRATE [Concomitant]
     Indication: NECK PAIN
  3. PREDNISONE [Concomitant]
     Indication: PRODUCT USED FOR UNKNOWN INDICATION
     Dosage: 10 MG - DAILY
  4. ZOLOFT [Concomitant]
     Indication: DEPRESSION
     Dosage: 50 MG - DAILY
  5. BENICAR [Concomitant]
     Indication: HYPERTENSION
     Dosage: 20 MG - DAILY
  6. HUMIRA [Suspect]
     Indication: CROHN'S DISEASE
     Dosage: SECONDARY LOADING DOSE
     Dates: start: 20110717
  7. FLECAINIDE ACETATE [Concomitant]
     Indication: ARRHYTHMIA
     Dosage: 100 MG - DAILY
  8. LIALDA [Concomitant]
     Indication: CROHN'S DISEASE
     Dosage: TWO TABLETS TWICE DAILY

REACTIONS (1)
  - RASH MACULAR [None]
